FAERS Safety Report 7961615-7 (Version None)
Quarter: 2011Q4

REPORT INFORMATION
  Report Type: 
  Country: None (occurrence: None)
  Receive Date: 20111202
  Receipt Date: 20111202
  Transmission Date: 20120403
  Serious: Yes (Other)
  Sender: FDA-Public Use
  Company Number: None

PATIENT
  Sex: Male
  Weight: 30.59 kg

DRUGS (2)
  1. TOPIRAMATE [Suspect]
     Indication: EPILEPSY
     Dosage: 4 TABS TID PO
     Route: 048
     Dates: start: 20100701, end: 20100901
  2. TOPIRAMATE [Suspect]
     Indication: CONVULSION
     Dosage: 4 TABS TID PO
     Route: 048
     Dates: start: 20100701, end: 20100901

REACTIONS (2)
  - ELECTROLYTE IMBALANCE [None]
  - BLOOD UREA INCREASED [None]
